FAERS Safety Report 13450158 (Version 1)
Quarter: 2017Q2

REPORT INFORMATION
  Report Type: Spontaneous
  Country: US (occurrence: US)
  Receive Date: 20170417
  Receipt Date: 20170417
  Transmission Date: 20170830
  Serious: No
  Sender: FDA-Public Use
  Company Number: US-BION-20160188

PATIENT
  Age: 72 Year
  Sex: Female
  Weight: 73.48 kg

DRUGS (5)
  1. OSTEO BIFLEX [Concomitant]
     Active Substance: CHONDROITIN SULFATE A\GLUCOSAMINE
  2. UNKNOWN SINUS MEDICATION [Concomitant]
     Dosage: BEEN TAKING THIS FOR OVER A YEAR
  3. ALEVE [Suspect]
     Active Substance: NAPROXEN SODIUM
     Indication: ARTHRITIS
     Dosage: 2-3 DOSAGE FORMS TAKEN DAILY
     Route: 048
  4. ZOLOFT [Concomitant]
     Active Substance: SERTRALINE HYDROCHLORIDE
     Dosage: HAS BEEN TAKING IT FOR 19-20 YEARS.
  5. UNKNOWN VITAMIN [Concomitant]

REACTIONS (2)
  - Drug ineffective [Not Recovered/Not Resolved]
  - Intentional product use issue [Unknown]

NARRATIVE: CASE EVENT DATE: 201605
